FAERS Safety Report 5934857-X (Version None)
Quarter: 2008Q4

REPORT INFORMATION
  Report Type: 
  Country: None (occurrence: None)
  Receive Date: 20081027
  Receipt Date: 20081007
  Transmission Date: 20090506
  Serious: Yes (Death)
  Sender: FDA-Public Use
  Company Number: 08H-122-0315073-00

PATIENT
  Age: 63 Year
  Sex: Male

DRUGS (4)
  1. PROPOFOL [Suspect]
  2. VECURONIUM BROMIDE [Suspect]
  3. BUPIVACAINE [Suspect]
  4. FENTANYL CITRATE [Suspect]

REACTIONS (1)
  - DRUG HYPERSENSITIVITY [None]
